FAERS Safety Report 7006576-2 (Version None)
Quarter: 2010Q3

REPORT INFORMATION
  Report Type: 
  Country: None (occurrence: None)
  Receive Date: 20100921
  Receipt Date: 20100921
  Transmission Date: 20110219
  Serious: Yes (Hospitalization)
  Sender: FDA-Public Use
  Company Number: None

PATIENT
  Sex: Male
  Weight: 68 kg

DRUGS (14)
  1. BORTEZOMIB [Suspect]
     Indication: MULTIPLE MYELOMA
     Dosage: 1MG/M2 DAYS 1,4,8,11 IV
     Route: 042
     Dates: start: 20091001
  2. METHYLPREDNISOLONE [Suspect]
     Indication: MULTIPLE MYELOMA
     Dosage: 60MG  DAYS 1,4,8,11 IV
     Route: 042
     Dates: start: 20091001
  3. ASPIRIN [Concomitant]
  4. ACYCLOVIR SODIUM [Concomitant]
  5. LIPITOR [Concomitant]
  6. PLAVIX [Concomitant]
  7. GABAPENTIN [Concomitant]
  8. LORAZEPAM [Concomitant]
  9. TOPROL-XL [Concomitant]
  10. MORPHINE CR [Concomitant]
  11. MORPHINE SULFATE [Concomitant]
  12. OMEPRAZOLE [Concomitant]
  13. ONDANSETRON [Concomitant]
  14. ZOLEDRONIC ACID [Concomitant]

REACTIONS (2)
  - ACUTE MYOCARDIAL INFARCTION [None]
  - MYOCARDIAL ISCHAEMIA [None]
